FAERS Safety Report 19518843 (Version 2)
Quarter: 2021Q4

REPORT INFORMATION
  Report Type: Spontaneous
  Country: GB (occurrence: GB)
  Receive Date: 20210712
  Receipt Date: 20211024
  Transmission Date: 20220303
  Serious: Yes (Hospitalization, Disabling)
  Sender: FDA-Public Use
  Company Number: GB-BETA-22668/10L

PATIENT
  Age: 70 Year
  Sex: Male

DRUGS (18)
  1. CLOPIDOGREL [Interacting]
     Active Substance: CLOPIDOGREL BISULFATE
     Indication: Chest pain
     Route: 048
  2. CLOPIDOGREL [Interacting]
     Active Substance: CLOPIDOGREL BISULFATE
     Route: 048
  3. CIPROFLOXACIN [Interacting]
     Active Substance: CIPROFLOXACIN
     Indication: Chalazion
     Route: 048
  4. CIPROFLOXACIN [Interacting]
     Active Substance: CIPROFLOXACIN
  5. ASPIRIN [Interacting]
     Active Substance: ASPIRIN
     Indication: Chest pain
     Dosage: PATIENT RECEIVED 300MG ON ADMITTANCE AND STARTED ON A 75MG/DAY REGIME
  6. ASPIRIN [Interacting]
     Active Substance: ASPIRIN
     Indication: Antiplatelet therapy
  7. ERYTHROMYCIN [Interacting]
     Active Substance: ERYTHROMYCIN
     Indication: Cellulitis
     Route: 048
  8. ERYTHROMYCIN [Interacting]
     Active Substance: ERYTHROMYCIN
     Indication: Chalazion
  9. METRONIDAZOLE [Interacting]
     Active Substance: METRONIDAZOLE
     Indication: Chalazion
     Route: 048
  10. METRONIDAZOLE [Interacting]
     Active Substance: METRONIDAZOLE
  11. WARFARIN [Interacting]
     Active Substance: WARFARIN
     Indication: Pulmonary embolism
  12. WARFARIN [Interacting]
     Active Substance: WARFARIN
     Indication: Factor V deficiency
  13. WARFARIN [Interacting]
     Active Substance: WARFARIN
     Indication: Pulmonary embolism
  14. TEICOPLANIN [Interacting]
     Active Substance: TEICOPLANIN
     Indication: Chalazion
     Route: 030
  15. TEICOPLANIN [Interacting]
     Active Substance: TEICOPLANIN
     Indication: Cellulitis
  16. MEROPENEM [Interacting]
     Active Substance: MEROPENEM
     Indication: Chalazion
     Route: 042
  17. MEROPENEM [Interacting]
     Active Substance: MEROPENEM
     Route: 042
  18. VITAMIN K [Concomitant]
     Active Substance: PHYTONADIONE
     Indication: Product used for unknown indication

REACTIONS (12)
  - Hyphaema [Recovered/Resolved with Sequelae]
  - Intraocular pressure increased [Not Recovered/Not Resolved]
  - Coagulation time prolonged [Unknown]
  - Potentiating drug interaction [Unknown]
  - Eye pain [Recovered/Resolved with Sequelae]
  - Visual acuity reduced [Unknown]
  - International normalised ratio increased [Recovered/Resolved]
  - Decreased appetite [Unknown]
  - Pyrexia [Unknown]
  - Headache [Unknown]
  - Nausea [Unknown]
  - Off label use [Unknown]
